FAERS Safety Report 25478292 (Version 1)
Quarter: 2025Q2

REPORT INFORMATION
  Report Type: Other
  Country: AU (occurrence: AU)
  Receive Date: 20250625
  Receipt Date: 20250625
  Transmission Date: 20250717
  Serious: Yes (Other)
  Sender: LUPIN
  Company Number: AU-LUPIN EUROPE GMBH-2025-05286

PATIENT
  Age: 21 Year
  Sex: Female

DRUGS (2)
  1. ETHINYL ESTRADIOL\LEVONORGESTREL [Suspect]
     Active Substance: ETHINYL ESTRADIOL\LEVONORGESTREL
     Indication: Product used for unknown indication
     Route: 065
  2. COMIRNATY (TOZINAMERAN) [Suspect]
     Active Substance: TOZINAMERAN
     Indication: Immunisation
     Route: 065

REACTIONS (5)
  - Acute macular neuroretinopathy [Unknown]
  - Chills [Unknown]
  - Headache [Unknown]
  - Myalgia [Unknown]
  - Visual field defect [Unknown]
